FAERS Safety Report 5703699-2 (Version None)
Quarter: 2008Q2

REPORT INFORMATION
  Report Type: 
  Country: None (occurrence: None)
  Receive Date: 20080413
  Receipt Date: 20080402
  Transmission Date: 20081010
  Serious: Yes (Hospitalization)
  Sender: FDA-Public Use
  Company Number: PHHO2008US04369

PATIENT
  Age: 53 Year
  Sex: Male
  Weight: 86.18 kg

DRUGS (5)
  1. RAD [Suspect]
     Indication: HEART TRANSPLANT
     Dosage: 0.75 MG, BID
     Route: 048
     Dates: start: 20071208
  2. NEORAL [Concomitant]
  3. APRESOLINE [Suspect]
     Indication: HYPERTENSION
     Dosage: 25 MG, BID
     Route: 048
     Dates: end: 20080329
  4. NORVASC [Suspect]
  5. LISINOPRIL [Suspect]

REACTIONS (6)
  - DEHYDRATION [None]
  - DIZZINESS [None]
  - HYPOTENSION [None]
  - ORAL INTAKE REDUCED [None]
  - PRESYNCOPE [None]
  - RENAL FAILURE ACUTE [None]
